FAERS Safety Report 4789428-8 (Version None)
Quarter: 2005Q4

REPORT INFORMATION
  Report Type: 
  Country: None (occurrence: None)
  Receive Date: 20051004
  Receipt Date: 20050919
  Transmission Date: 20060501
  Serious: Yes (Hospitalization)
  Sender: FDA-Public Use
  Company Number: 199324

PATIENT
  Age: 45 Year
  Sex: Female
  Weight: 69.8539 kg

DRUGS (4)
  1. AVONEX [Suspect]
     Indication: MULTIPLE SCLEROSIS
     Dosage: 30 UG;QW;IM
     Route: 030
     Dates: start: 20010101
  2. AVONEX [Suspect]
     Indication: MULTIPLE SCLEROSIS
     Dosage: 30 UG;QW;IM
     Route: 030
     Dates: start: 20040401, end: 20050613
  3. EYE DROPS [Concomitant]
  4. ANTIHISTAMINE [Concomitant]

REACTIONS (8)
  - HOT FLUSH [None]
  - MIGRAINE [None]
  - NIGHT SWEATS [None]
  - OOPHORECTOMY [None]
  - PALPITATIONS [None]
  - TEMPERATURE INTOLERANCE [None]
  - THYROIDITIS [None]
  - WEIGHT INCREASED [None]
